FAERS Safety Report 10874273 (Version 4)
Quarter: 2015Q4

REPORT INFORMATION
  Report Type: Report from Study
  Country: US (occurrence: US)
  Receive Date: 20150227
  Receipt Date: 20151130
  Transmission Date: 20160304
  Serious: Yes (Hospitalization, Other)
  Sender: FDA-Public Use
  Company Number: US-SA-2014SA162457

PATIENT
  Age: 53 Year
  Sex: Female

DRUGS (5)
  1. AUBAGIO [Suspect]
     Active Substance: TERIFLUNOMIDE
     Indication: MULTIPLE SCLEROSIS
     Route: 048
     Dates: start: 20141107, end: 20151012
  2. GABAPENTIN. [Suspect]
     Active Substance: GABAPENTIN
     Route: 065
  3. TECFIDERA [Concomitant]
     Active Substance: DIMETHYL FUMARATE
     Indication: MULTIPLE SCLEROSIS
     Dates: start: 201406, end: 201411
  4. AUBAGIO [Suspect]
     Active Substance: TERIFLUNOMIDE
     Indication: MULTIPLE SCLEROSIS
     Route: 048
     Dates: start: 20151028
  5. BACLOFEN. [Suspect]
     Active Substance: BACLOFEN
     Route: 065

REACTIONS (17)
  - Condition aggravated [Unknown]
  - Neck pain [Unknown]
  - Fatigue [Unknown]
  - Hypoaesthesia [Unknown]
  - Contusion [Unknown]
  - Feeling abnormal [Unknown]
  - Hand fracture [Unknown]
  - Pain in extremity [Unknown]
  - Paraesthesia [Unknown]
  - Nuclear magnetic resonance imaging abnormal [Unknown]
  - Limb discomfort [Unknown]
  - Multiple sclerosis relapse [Recovered/Resolved]
  - Musculoskeletal pain [Unknown]
  - Fall [Unknown]
  - Eye disorder [Unknown]
  - Conjunctivitis [Recovered/Resolved]
  - Peripheral swelling [Unknown]

NARRATIVE: CASE EVENT DATE: 201411
